FAERS Safety Report 9238630 (Version 1)
Quarter: 2013Q2

REPORT INFORMATION
  Report Type: Spontaneous
  Country: US (occurrence: US)
  Receive Date: 20130418
  Receipt Date: 20130418
  Transmission Date: 20140414
  Serious: Yes (Other)
  Sender: FDA-Public Use
  Company Number: US-SUN PHARMACEUTICAL INDUSTRIES LTD-2013SUN00474

PATIENT
  Age: 14 Year
  Sex: Female

DRUGS (2)
  1. DOCETAXEL INJECTION [Suspect]
     Indication: SYNOVIAL SARCOMA
     Dosage: 100 MG/M2, DAY 8 AND DAY 28
     Route: 065
  2. GEMCITABINE [Suspect]
     Indication: SYNOVIAL SARCOMA
     Dosage: 900 MG/M2,DAY 1, DAY8 AND DAY 21
     Route: 065

REACTIONS (2)
  - Myositis [Recovering/Resolving]
  - Compartment syndrome [Recovering/Resolving]
